FAERS Safety Report 7409836-6 (Version None)
Quarter: 2011Q2

REPORT INFORMATION
  Report Type: 
  Country: None (occurrence: None)
  Receive Date: 20110412
  Receipt Date: 20110401
  Transmission Date: 20111010
  Serious: Yes (Death, Other)
  Sender: FDA-Public Use
  Company Number: NL-ELI_LILLY_AND_COMPANY-NL201104000813

PATIENT
  Age: 53 Year
  Sex: Female

DRUGS (1)
  1. GEMCITABINE HYDROCHLORIDE [Suspect]
     Indication: BREAST CANCER METASTATIC
     Dosage: 1250 MG/M2, DAY 1 AND 8 IN EACH THREE WEEK CYCLE

REACTIONS (6)
  - HAEMORRHAGE [None]
  - THROMBOTIC MICROANGIOPATHY [None]
  - RENAL TUBULAR NECROSIS [None]
  - HAEMORRHAGIC CEREBRAL INFARCTION [None]
  - SHOCK [None]
  - HEPATIC NECROSIS [None]
